FAERS Safety Report 9735976 (Version 4)
Quarter: 2014Q1

REPORT INFORMATION
  Report Type: Spontaneous
  Country: US (occurrence: None)
  Receive Date: 20131204
  Receipt Date: 20140228
  Transmission Date: 20141002
  Serious: Yes (Death, Hospitalization)
  Sender: FDA-Public Use
  Company Number: 2013SGN00774

PATIENT
  Age: 67 Year
  Sex: Female
  Weight: 104.8 kg

DRUGS (10)
  1. BRENTUXIMAB VEDOTIN [Suspect]
     Indication: HODGKIN^S DISEASE
     Dosage: 1.8 MG/KG, Q21D, INTRAVENOUS
     Route: 042
     Dates: start: 20131112, end: 20131112
  2. ALLOPURINOL [Concomitant]
  3. ATIVAN [Concomitant]
  4. OMEPRAZOLE (OMEPRAZOLE) [Concomitant]
  5. CARAFATE [Concomitant]
  6. CITALOPRAM (CITALOPRAM) [Concomitant]
  7. MORPHINE [Concomitant]
  8. OXYCODONE [Concomitant]
  9. ZOLPIDEM (ZOLPIDEM TARTRATE) [Concomitant]
  10. LIDODERM (LIDOCAINE) [Concomitant]

REACTIONS (35)
  - Muscular weakness [None]
  - Decreased appetite [None]
  - Musculoskeletal chest pain [None]
  - Fatigue [None]
  - Somnolence [None]
  - Pyrexia [None]
  - Chills [None]
  - Hyperhidrosis [None]
  - Dyspnoea [None]
  - Respiratory rate increased [None]
  - Blood pressure diastolic decreased [None]
  - Oxygen saturation decreased [None]
  - Blood uric acid increased [None]
  - Blood phosphorus increased [None]
  - Rales [None]
  - Oedema [None]
  - Haemoglobin decreased [None]
  - Blood chloride decreased [None]
  - Blood bilirubin increased [None]
  - Blood alkaline phosphatase increased [None]
  - Aspartate aminotransferase increased [None]
  - Alanine aminotransferase increased [None]
  - Cerebral atrophy [None]
  - Sinus tachycardia [None]
  - Supraventricular extrasystoles [None]
  - QRS axis abnormal [None]
  - Electrocardiogram T wave abnormal [None]
  - Bundle branch block right [None]
  - Escherichia urinary tract infection [None]
  - Renal failure acute [None]
  - Tumour lysis syndrome [None]
  - Pneumonia staphylococcal [None]
  - Depressed level of consciousness [None]
  - Bundle branch block right [None]
  - Platelet count decreased [None]
